FAERS Safety Report 7745419-6 (Version None)
Quarter: 2011Q3

REPORT INFORMATION
  Report Type: 
  Country: None (occurrence: None)
  Receive Date: 20110913
  Receipt Date: 20110901
  Transmission Date: 20111222
  Serious: Yes (Hospitalization)
  Sender: FDA-Public Use
  Company Number: US-RANBAXY-2011US-45539

PATIENT

DRUGS (1)
  1. CLINDAMYCIN [Suspect]
     Indication: TOOTH ABSCESS
     Dosage: 300 MG, QID
     Route: 048
     Dates: start: 20110429

REACTIONS (6)
  - ABDOMINAL PAIN UPPER [None]
  - CLOSTRIDIUM DIFFICILE COLITIS [None]
  - ASTHENIA [None]
  - INFLUENZA LIKE ILLNESS [None]
  - DYSPEPSIA [None]
  - DEHYDRATION [None]
